FAERS Safety Report 10363363 (Version 1)
Quarter: 2014Q3

REPORT INFORMATION
  Report Type: Spontaneous
  Country: US (occurrence: None)
  Receive Date: 20140804
  Receipt Date: 20140804
  Transmission Date: 20150326
  Serious: Yes (Hospitalization)
  Sender: FDA-Public Use
  Company Number: None

PATIENT
  Age: 67 Year
  Sex: Male
  Weight: 98.5 kg

DRUGS (1)
  1. PRAZOSIN [Suspect]
     Active Substance: PRAZOSIN
     Indication: DEPRESSION
     Route: 048
     Dates: start: 20140109, end: 20140618

REACTIONS (3)
  - Confusional state [None]
  - Sedation [None]
  - Hypotension [None]

NARRATIVE: CASE EVENT DATE: 20140612
